FAERS Safety Report 8906169 (Version 1)
Quarter: 2012Q4

REPORT INFORMATION
  Report Type: Spontaneous
  Country: AT (occurrence: None)
  Receive Date: 20121109
  Receipt Date: 20121109
  Transmission Date: 20130627
  Serious: Yes (Other)
  Sender: FDA-Public Use
  Company Number: 2012P1062198

PATIENT
  Sex: Male

DRUGS (5)
  1. PREDNISONE [Suspect]
     Indication: ACUTE LYMPHOBLASTIC LEUKEMIA
  2. L-ASPARAGINASE [Suspect]
     Indication: ACUTE LYMPHOBLASTIC LEUKEMIA
  3. VINCRISTINE [Concomitant]
  4. DAUNORUBICIN [Concomitant]
  5. METHOTREXATE [Concomitant]

REACTIONS (2)
  - Pancreatic enzymes increased [None]
  - Hypertriglyceridaemia [None]
